FAERS Safety Report 8960382 (Version 3)
Quarter: 2013Q1

REPORT INFORMATION
  Report Type: Report from Study
  Country: JP (occurrence: JP)
  Receive Date: 20121211
  Receipt Date: 20130205
  Transmission Date: 20140127
  Serious: Yes (Death)
  Sender: FDA-Public Use
  Company Number: JP-009507513-1212JPN002870

PATIENT
  Age: 62 Year
  Sex: Female
  Weight: 62 kg

DRUGS (11)
  1. TEMODAL [Suspect]
     Indication: GLIOBLASTOMA MULTIFORME
     Dosage: 150 MICROGRAM PER SQ METER, QD
     Route: 042
     Dates: start: 20121108, end: 20121111
  2. TEMODAL [Suspect]
     Dosage: 200 MICROGRAM PER SQ METER, QD
     Route: 042
     Dates: start: 20120405, end: 20120409
  3. TEMODAL [Suspect]
     Dosage: 200 MICROGRAM PER SQ METER, QD
     Route: 042
     Dates: start: 20120517, end: 20120521
  4. TEMODAL [Suspect]
     Dosage: 150 MICROGRAM PER SQ METER, QD
     Route: 042
     Dates: start: 20120903, end: 20120907
  5. TEMODAL [Suspect]
     Dosage: 150 MICROGRAM PER SQ METER, QD
     Route: 042
     Dates: start: 20121009, end: 20121013
  6. TEMODAL [Suspect]
     Indication: GLIOBLASTOMA MULTIFORME
     Dosage: DAILY DOSE UNKNOWN
     Route: 048
     Dates: start: 2008, end: 201203
  7. TEMODAL [Suspect]
     Dosage: 200 MICROGRAM PER SQ METER, QD
     Route: 048
     Dates: start: 20120614, end: 20120618
  8. BENAMBAX [Concomitant]
     Indication: ANTIFUNGAL PROPHYLAXIS
     Dosage: DAILY DOSE UNKNOWN
     Route: 055
     Dates: start: 20120405, end: 20121101
  9. VALERIN [Concomitant]
     Dosage: DAILY DOSE UNKNOWN
     Route: 048
     Dates: end: 20121111
  10. TAKEPRON [Concomitant]
     Dosage: DAILY DOSE UNKNOW
     Route: 048
     Dates: end: 20121111
  11. TEGRETOL [Concomitant]
     Dosage: DAILY DOSE UNKNOWN
     Route: 048
     Dates: end: 20121111

REACTIONS (4)
  - Acute respiratory failure [Fatal]
  - Disease progression [Fatal]
  - Platelet count decreased [Not Recovered/Not Resolved]
  - Epilepsy [Recovering/Resolving]
